FAERS Safety Report 21930904 (Version 1)
Quarter: 2023Q1

REPORT INFORMATION
  Report Type: Spontaneous
  Country: US (occurrence: US)
  Receive Date: 20230131
  Receipt Date: 20230131
  Transmission Date: 20230417
  Serious: No
  Sender: FDA-Public Use
  Company Number: US-IMMUNOCORE, LTD-2022-IMC-001270

PATIENT
  Sex: Female

DRUGS (1)
  1. KIMMTRAK [Suspect]
     Active Substance: TEBENTAFUSP-TEBN
     Indication: Product used for unknown indication

REACTIONS (1)
  - Disease progression [Unknown]
